FAERS Safety Report 15350889 (Version 1)
Quarter: 2018Q3

REPORT INFORMATION
  Report Type: Spontaneous
  Country: US (occurrence: US)
  Receive Date: 20180905
  Receipt Date: 20180905
  Transmission Date: 20181010
  Serious: Yes (Hospitalization)
  Sender: FDA-Public Use
  Company Number: US-ROCHE-2180614

PATIENT
  Sex: Male

DRUGS (16)
  1. LUMIGAN [Concomitant]
     Active Substance: BIMATOPROST
  2. LORATADINE. [Concomitant]
     Active Substance: LORATADINE
  3. BYSTOLIC [Concomitant]
     Active Substance: NEBIVOLOL HYDROCHLORIDE
  4. AMMONIUM LACTATE. [Concomitant]
     Active Substance: AMMONIUM LACTATE
  5. OXYBUTYNIN. [Concomitant]
     Active Substance: OXYBUTYNIN CHLORIDE
  6. TRIAMCINOLON [Concomitant]
  7. ALBUTEROL. [Concomitant]
     Active Substance: ALBUTEROL
  8. AUGMENTED BETAMETHASONE DIPROPIONATE OINTMENT [Concomitant]
  9. BETAMETHASONE DIPROPIONATE CREAM [Concomitant]
     Active Substance: BETAMETHASONE DIPROPIONATE
  10. TOPIRAMATE. [Concomitant]
     Active Substance: TOPIRAMATE
  11. CODEINE/PROMETHAZINE [Concomitant]
     Active Substance: CODEINE\PROMETHAZINE
  12. TIZANIDINE. [Concomitant]
     Active Substance: TIZANIDINE
  13. ESBRIET [Suspect]
     Active Substance: PIRFENIDONE
     Indication: IDIOPATHIC PULMONARY FIBROSIS
     Route: 048
     Dates: start: 20161103
  14. OXYCOD SYRUP [Concomitant]
  15. HYDROXYZINE HCL [Concomitant]
     Active Substance: HYDROXYZINE HYDROCHLORIDE
  16. FLECAINIDE [Concomitant]
     Active Substance: FLECAINIDE

REACTIONS (1)
  - Lung disorder [Unknown]
